FAERS Safety Report 7458449-9 (Version None)
Quarter: 2011Q2

REPORT INFORMATION
  Report Type: 
  Country: None (occurrence: None)
  Receive Date: 20110504
  Receipt Date: 20110427
  Transmission Date: 20111010
  Serious: Yes (Other)
  Sender: FDA-Public Use
  Company Number: B0716154A

PATIENT

DRUGS (3)
  1. REQUIP [Suspect]
     Route: 048
  2. LEVODOPA [Concomitant]
     Route: 065
  3. COMTAN [Concomitant]
     Route: 048

REACTIONS (1)
  - SUDDEN ONSET OF SLEEP [None]
